FAERS Safety Report 16799550 (Version 1)
Quarter: 2019Q3

REPORT INFORMATION
  Report Type: Spontaneous
  Country: US (occurrence: US)
  Receive Date: 20190723
  Receipt Date: 20190723
  Transmission Date: 20191005
  Serious: Yes (Congenital Anomaly)
  Sender: FDA-Public Use
  Company Number: None

PATIENT
  Age: 25 Year
  Sex: Female
  Weight: 86.64 kg

DRUGS (1)
  1. LAMOTRIGINE. [Suspect]
     Active Substance: LAMOTRIGINE
     Indication: SEIZURE
     Dosage: ?          OTHER FREQUENCY:NIGHTLY ;?
     Route: 048
     Dates: start: 2015, end: 2018

REACTIONS (3)
  - Rash [None]
  - Pruritus [None]
  - Mast cell activation syndrome [None]
